FAERS Safety Report 25787819 (Version 1)
Quarter: 2025Q3

REPORT INFORMATION
  Report Type: Spontaneous
  Country: EU (occurrence: EU)
  Receive Date: 20250910
  Receipt Date: 20250910
  Transmission Date: 20251021
  Serious: Yes (Other)
  Sender: MSN LABORATORIES PRIVATE LIMITED
  Company Number: None

PATIENT

DRUGS (5)
  1. PREGABALIN [Suspect]
     Active Substance: PREGABALIN
     Indication: Neuralgia
     Dosage: 75 MG, Q12H
     Route: 065
  2. BUPRENORPHINE [Suspect]
     Active Substance: BUPRENORPHINE
     Indication: Neuralgia
     Dosage: 35 UG, QH (TTS 35 UG/H (PATCH CHANGE  EVERY 72 HOURS)
     Route: 065
  3. CIPROFLOXACIN [Suspect]
     Active Substance: CIPROFLOXACIN
     Indication: Skin bacterial infection
     Dosage: 1000 MG, QD (500 MG 2 X/24 H)
     Route: 065
  4. CIPROFLOXACIN [Suspect]
     Active Substance: CIPROFLOXACIN
     Indication: Skin bacterial infection
     Dosage: 1000 MG, QD(500 MG, BID)
     Route: 065
  5. SERTRALINE [Suspect]
     Active Substance: SERTRALINE HYDROCHLORIDE
     Indication: Depression
     Dosage: 100 MG, Q24H (100 MILLIGRAM, QD FILM-COATED TABLET )
     Route: 065

REACTIONS (7)
  - Drug interaction [Unknown]
  - Condition aggravated [Unknown]
  - Skin infection [Unknown]
  - Skin burning sensation [Unknown]
  - Pruritus [Unknown]
  - Burning sensation [Unknown]
  - Pain [Unknown]
